FAERS Safety Report 13853236 (Version 1)
Quarter: 2017Q3

REPORT INFORMATION
  Report Type: Spontaneous
  Country: US (occurrence: US)
  Receive Date: 20170809
  Receipt Date: 20170809
  Transmission Date: 20171127
  Serious: Yes (Life-Threatening, Hospitalization, Other)
  Sender: FDA-Public Use
  Company Number: None

PATIENT
  Sex: Female

DRUGS (6)
  1. WALKER [Concomitant]
  2. PHYSICAL THERAPY [Concomitant]
  3. ANTI SEIZURES MEDICATION [Concomitant]
  4. BLOOD PRESSURE [Concomitant]
  5. WHEEL CHAIR [Concomitant]
  6. CIPRO [Suspect]
     Active Substance: CIPROFLOXACIN HYDROCHLORIDE
     Indication: URINARY TRACT INFECTION
     Dates: start: 20130829

REACTIONS (2)
  - Intracranial aneurysm [None]
  - Coma [None]

NARRATIVE: CASE EVENT DATE: 20131202
